FAERS Safety Report 8218921-0 (Version None)
Quarter: 2012Q1

REPORT INFORMATION
  Report Type: 
  Country: None (occurrence: None)
  Receive Date: 20120319
  Receipt Date: 20120315
  Transmission Date: 20120608
  Serious: Yes (Hospitalization)
  Sender: FDA-Public Use
  Company Number: PHHY2012DE006201

PATIENT
  Sex: Male
  Weight: 68 kg

DRUGS (1)
  1. ILARIS [Suspect]
     Indication: CHRONIC INFANTILE NEUROLOGICAL CUTANEOUS AND ARTICULAR SYNDROME
     Dosage: 150 MG, UNK
     Route: 058
     Dates: start: 20100331

REACTIONS (1)
  - DEPRESSION [None]
